FAERS Safety Report 4688676-5 (Version None)
Quarter: 2005Q2

REPORT INFORMATION
  Report Type: 
  Country: None (occurrence: None)
  Receive Date: 20050610
  Receipt Date: 20050610
  Transmission Date: 20051028
  Serious: No
  Sender: FDA-Public Use
  Company Number: None

PATIENT
  Age: 61 Year
  Sex: Male
  Weight: 81.1939 kg

DRUGS (12)
  1. DOCETAXEL [Suspect]
     Indication: PANCREATIC CARCINOMA
     Dosage: 40MG/M2 DAYS 1,8
     Dates: start: 20050526, end: 20050602
  2. IRESSA [Suspect]
     Indication: PANCREATIC CARCINOMA
     Dosage: 250MG  PO  QD
     Route: 048
     Dates: start: 20050526, end: 20050605
  3. AMBIEN [Concomitant]
  4. ATIVAN [Concomitant]
  5. COLACE [Concomitant]
  6. COMPAZINE [Concomitant]
  7. DEXAMETHASONE [Concomitant]
  8. LEXAPRO [Concomitant]
  9. OXYCODONE HCL [Concomitant]
  10. OXYCONTIN [Concomitant]
  11. SENNA [Concomitant]
  12. ZOFRAN [Concomitant]

REACTIONS (3)
  - MOUTH HAEMORRHAGE [None]
  - ORAL PAIN [None]
  - STOMATITIS [None]
